FAERS Safety Report 7673796-3 (Version None)
Quarter: 2011Q3

REPORT INFORMATION
  Report Type: 
  Country: None (occurrence: None)
  Receive Date: 20110808
  Receipt Date: 20110803
  Transmission Date: 20111222
  Serious: Yes (Other)
  Sender: FDA-Public Use
  Company Number: ACO_24033_2011

PATIENT
  Age: 47 Year
  Sex: Male

DRUGS (8)
  1. ZANAFLEX [Suspect]
     Indication: PRODUCT USED FOR UNKNOWN INDICATION
  2. AMPYRA [Suspect]
     Indication: PRODUCT USED FOR UNKNOWN INDICATION
     Dosage: 10 MG, BID, ORAL
     Route: 048
     Dates: start: 20100801, end: 20110101
  3. REMERON [Concomitant]
  4. BACLOFEN [Concomitant]
  5. NUVIGIL [Concomitant]
  6. SIMVASTATIN [Concomitant]
  7. RESTORIL (CHLORMEZANONE) [Concomitant]
  8. CIALIS [Concomitant]

REACTIONS (4)
  - LIP INJURY [None]
  - HAEMOPTYSIS [None]
  - LOSS OF CONSCIOUSNESS [None]
  - CONVULSION [None]
